FAERS Safety Report 7224803-3 (Version None)
Quarter: 2011Q1

REPORT INFORMATION
  Report Type: 
  Country: None (occurrence: None)
  Receive Date: 20110103
  Receipt Date: 20101220
  Transmission Date: 20110831
  Serious: Yes (Hospitalization)
  Sender: FDA-Public Use
  Company Number: 2010MA005495

PATIENT
  Age: 38 Year
  Sex: Male

DRUGS (12)
  1. MYCOSTATIN [Concomitant]
  2. ACETYLCYSTEINE [Concomitant]
  3. MOVICOL [Concomitant]
  4. COCILLANA-RTYFIN [Concomitant]
  5. DIAZEPAM [Suspect]
     Indication: EPILEPSY
     Dosage: RTL
     Route: 054
     Dates: end: 20101025
  6. KALCIPOS [Concomitant]
  7. YTRIOBE [Concomitant]
  8. ACETAMINOPHEN [Concomitant]
  9. NASONEX [Concomitant]
  10. VIMPAT [Concomitant]
  11. MICROLAX [Concomitant]
  12. IMPUGAN [Concomitant]

REACTIONS (4)
  - HYPOTENSION [None]
  - MUSCLE SPASMS [None]
  - UNRESPONSIVE TO STIMULI [None]
  - HYPOTHERMIA [None]
